FAERS Safety Report 8612790 (Version 2)
Quarter: 2013Q1

REPORT INFORMATION
  Report Type: Spontaneous
  Country: US (occurrence: US)
  Receive Date: 20120613
  Receipt Date: 20130222
  Transmission Date: 20140127
  Serious: No
  Sender: FDA-Public Use
  Company Number: US-BAYER-2012-056738

PATIENT
  Sex: Female

DRUGS (1)
  1. SAFYRAL [Suspect]

REACTIONS (2)
  - Metrorrhagia [None]
  - Influenza [None]
